FAERS Safety Report 8959332 (Version 1)
Quarter: 2012Q4

REPORT INFORMATION
  Report Type: 
  Country: US (occurrence: US)
  Receive Date: 20121211
  Receipt Date: 20121211
  Transmission Date: 20130627
  Serious: Yes (Hospitalization, Other)
  Sender: FDA-Public Use
  Company Number: US-ABBOTT-12P-163-1019269-00

PATIENT
  Age: 34 None
  Sex: Female
  Weight: 72.64 kg

DRUGS (7)
  1. LUPRON DEPOT [Suspect]
     Indication: ENDOMETRIOSIS
     Dates: start: 201208, end: 201209
  2. LUPRON DEPOT [Suspect]
     Indication: UTERINE LEIOMYOMA
  3. LUPRON DEPOT [Suspect]
     Indication: ENDOMETRIOSIS
     Dates: start: 201209
  4. LUPRON DEPOT [Suspect]
     Indication: UTERINE LEIOMYOMA
  5. LUPRON [Suspect]
     Indication: PRENATAL CARE
     Dosage: Unknown dose
     Dates: start: 2008, end: 2008
  6. LUPRON [Suspect]
     Dosage: Unknown dose
     Dates: start: 2009, end: 2009
  7. ADD BACK THERAPY [Concomitant]
     Indication: HORMONE REPLACEMENT THERAPY
     Dates: start: 2012

REACTIONS (6)
  - Abortion spontaneous [Unknown]
  - Subchorionic haematoma [Recovered/Resolved]
  - Migraine [Recovered/Resolved]
  - Off label use [Unknown]
  - Arthralgia [Not Recovered/Not Resolved]
  - Arthralgia [Not Recovered/Not Resolved]
